FAERS Safety Report 6331645-X (Version None)
Quarter: 2009Q3

REPORT INFORMATION
  Report Type: 
  Country: None (occurrence: None)
  Receive Date: 20090827
  Receipt Date: 20090820
  Transmission Date: 20100115
  Serious: Yes (Other)
  Sender: FDA-Public Use
  Company Number: PHHY2009CN35188

PATIENT
  Age: 51 Year
  Sex: Female

DRUGS (5)
  1. CYCLOSPORINE [Suspect]
     Indication: STEM CELL TRANSPLANT
     Dosage: 250 MG, BID
     Route: 048
  2. MYCOPHENOLIC ACID [Suspect]
     Indication: LIVER TRANSPLANT
     Dosage: 0.75 G, BID
     Route: 048
  3. MYCOPHENOLIC ACID [Suspect]
     Indication: IMMUNOSUPPRESSION
  4. METHYLPREDNISOLONE [Suspect]
     Indication: LIVER TRANSPLANT
     Route: 042
  5. METHYLPREDNISOLONE [Suspect]
     Indication: IMMUNOSUPPRESSION

REACTIONS (15)
  - AKINESIA [None]
  - APHASIA [None]
  - COGNITIVE DISORDER [None]
  - DYSARTHRIA [None]
  - DYSPHAGIA [None]
  - EXTENSOR PLANTAR RESPONSE [None]
  - HYPERTONIA [None]
  - HYPOKINESIA [None]
  - LACK OF SPONTANEOUS SPEECH [None]
  - LOCKED-IN SYNDROME [None]
  - MOVEMENT DISORDER [None]
  - MUSCULAR WEAKNESS [None]
  - OSMOTIC DEMYELINATION SYNDROME [None]
  - SENSORY LOSS [None]
  - UNRESPONSIVE TO STIMULI [None]
